FAERS Safety Report 14686161 (Version 1)
Quarter: 2018Q1

REPORT INFORMATION
  Report Type: Spontaneous
  Country: US (occurrence: US)
  Receive Date: 20180326
  Receipt Date: 20180326
  Transmission Date: 20180509
  Serious: Yes (Life-Threatening, Hospitalization)
  Sender: FDA-Public Use
  Company Number: None

PATIENT
  Age: 32 Year
  Sex: Female
  Weight: 78.75 kg

DRUGS (8)
  1. PROPRANOLOL 10MG 1-2 TABLETS TWICE DAILY [Concomitant]
     Dates: start: 20171228, end: 20180326
  2. LEVORA-28 0.15-0.03 MG ORAL TAB [Concomitant]
     Dates: start: 20130315, end: 20180326
  3. TRAZODONE 100MG ONE-HALF TO 1 TABLET AT BEDTIME [Concomitant]
     Dates: start: 20170701, end: 20180326
  4. MELOXICAM 15MG ONCE DAILY [Concomitant]
     Dates: start: 20160907, end: 20180326
  5. SERTRALINE [Suspect]
     Active Substance: SERTRALINE HYDROCHLORIDE
     Indication: ANXIETY
     Route: 048
     Dates: start: 20171129, end: 20180228
  6. SERTRALINE [Suspect]
     Active Substance: SERTRALINE HYDROCHLORIDE
     Indication: DEPRESSION
     Route: 048
     Dates: start: 20171129, end: 20180228
  7. LAMOTRIGINE 150MG ONCE DAILY [Concomitant]
     Dates: start: 20161018, end: 20180326
  8. HYDROXYZINE HCL 50MG 1 TABLET BY MOUTH 3-4 TIMES A DAY [Concomitant]
     Dates: start: 20180101, end: 20180326

REACTIONS (6)
  - Nausea [None]
  - Chills [None]
  - Myalgia [None]
  - Abdominal pain [None]
  - Diarrhoea [None]
  - Vomiting [None]

NARRATIVE: CASE EVENT DATE: 20180223
